FAERS Safety Report 7478821-0 (Version None)
Quarter: 2011Q2

REPORT INFORMATION
  Report Type: 
  Country: None (occurrence: None)
  Receive Date: 20110513
  Receipt Date: 20110505
  Transmission Date: 20111010
  Serious: Yes (Death, Other)
  Sender: FDA-Public Use
  Company Number: US-ROCHE-775664

PATIENT
  Sex: Female

DRUGS (7)
  1. AVASTIN [Suspect]
     Route: 042
     Dates: start: 20110307, end: 20110421
  2. CISPLATIN [Suspect]
     Route: 042
     Dates: start: 20110307, end: 20110421
  3. VICODIN [Concomitant]
  4. POTASSIUM CHLORIDE [Concomitant]
  5. TOPOTECAN [Suspect]
     Route: 042
     Dates: start: 20110307, end: 20110421
  6. MAGIC MOUTHWASH (ALUMINUM HYDROXIDE/DIPHENHYDRAMINE/HYDROCORTISONE/LI+ [Concomitant]
  7. METRONIDAZOLE [Concomitant]

REACTIONS (6)
  - FATIGUE [None]
  - DIARRHOEA [None]
  - NAUSEA [None]
  - DEATH [None]
  - VOMITING [None]
  - MUCOSAL INFLAMMATION [None]
